FAERS Safety Report 13476076 (Version 3)
Quarter: 2017Q3

REPORT INFORMATION
  Report Type: Spontaneous
  Country: KR (occurrence: KR)
  Receive Date: 20170425
  Receipt Date: 20170714
  Transmission Date: 20171127
  Serious: Yes (Hospitalization)
  Sender: FDA-Public Use
  Company Number: KR-009507513-1704KOR009775

PATIENT
  Age: 70 Year
  Sex: Male
  Weight: 71.2 kg

DRUGS (38)
  1. IRESSA [Concomitant]
     Active Substance: GEFITINIB
     Indication: CHEMOTHERAPY
     Dosage: 250 MG (1 TABLET), ONCE: CYCLE 1
     Route: 048
     Dates: start: 20170227, end: 20170227
  2. ALOXI [Concomitant]
     Active Substance: PALONOSETRON HYDROCHLORIDE
     Dosage: 0.25 MG, ONCE
     Route: 042
     Dates: start: 20170321, end: 20170321
  3. ALOXI [Concomitant]
     Active Substance: PALONOSETRON HYDROCHLORIDE
     Dosage: 0.25 MG, ONCE
     Route: 042
     Dates: start: 20170411, end: 20170411
  4. MUCOPECT [Concomitant]
     Indication: PRODUCTIVE COUGH
     Dosage: 1 TABLET, TID
     Route: 048
     Dates: start: 20170217, end: 20170310
  5. DIABEX [Concomitant]
     Active Substance: METFORMIN HYDROCHLORIDE
     Indication: DIABETES MELLITUS
     Dosage: 250 MG (1 TABLET), BID
     Route: 048
  6. SYNATURA [Concomitant]
     Indication: COUGH
     Dosage: 15 ML, TID
     Route: 048
     Dates: start: 20170217, end: 20170411
  7. DEXAMETHASONE. [Concomitant]
     Active Substance: DEXAMETHASONE
     Dosage: 8 MG, TID
     Route: 048
     Dates: start: 20170321, end: 20170321
  8. CHLORPHENIRAMINE MALEATE. [Concomitant]
     Active Substance: CHLORPHENIRAMINE MALEATE
     Indication: COUGH
     Dosage: 1 TABLET, QD
     Route: 048
     Dates: start: 20170225, end: 20170308
  9. CYMBALTA [Concomitant]
     Active Substance: DULOXETINE HYDROCHLORIDE
     Indication: PAIN PROPHYLAXIS
     Dosage: 30 MG (1 CAPSULE), QD
     Route: 048
     Dates: start: 20170217
  10. EMEND (FOSAPREPITANT DIMEGLUMINE) [Suspect]
     Active Substance: FOSAPREPITANT DIMEGLUMINE
     Indication: PROPHYLAXIS OF NAUSEA AND VOMITING
     Dosage: 150 MG, ONCE
     Route: 042
     Dates: start: 20170227, end: 20170227
  11. CISPLATIN. [Concomitant]
     Active Substance: CISPLATIN
     Indication: CHEMOTHERAPY
     Dosage: 74 MG, ONCE; CYCLE 1
     Route: 042
     Dates: start: 20170227, end: 20170227
  12. DEXAMETHASONE SODIUM PHOSPHATE. [Concomitant]
     Active Substance: DEXAMETHASONE SODIUM PHOSPHATE
     Indication: ANTIEMETIC SUPPORTIVE CARE
     Dosage: 4 MG, ONCE; CONCENTRATION: 5MG/ML
     Route: 042
     Dates: start: 20170228, end: 20170228
  13. SIGMART [Concomitant]
     Active Substance: NICORANDIL
     Indication: ACUTE MYOCARDIAL INFARCTION
     Dosage: 5 MG (1 TABLET), BID
     Route: 048
  14. SCD RANITIDINE [Concomitant]
     Indication: PROPHYLAXIS
     Dosage: 150 MG (1 TABLET), QD
     Route: 048
     Dates: start: 20170217, end: 20170401
  15. METHYSOL [Concomitant]
     Indication: PROPHYLAXIS OF NAUSEA AND VOMITING
     Dosage: 37.5 MG, QD
     Route: 042
     Dates: start: 20170217, end: 20170222
  16. EMEND (FOSAPREPITANT DIMEGLUMINE) [Suspect]
     Active Substance: FOSAPREPITANT DIMEGLUMINE
     Dosage: 150 MG, ONCE
     Route: 042
     Dates: start: 20170321, end: 20170321
  17. DEXAMETHASONE. [Concomitant]
     Active Substance: DEXAMETHASONE
     Dosage: 8 MG, TID
     Route: 048
     Dates: start: 20170227, end: 20170227
  18. DEXAMETHASONE. [Concomitant]
     Active Substance: DEXAMETHASONE
     Dosage: 8 MG, QD
     Route: 048
     Dates: start: 20170410, end: 20170412
  19. DEXAMETHASONE. [Concomitant]
     Active Substance: DEXAMETHASONE
     Dosage: 4 MG, ONCE
     Route: 048
     Dates: start: 20170413, end: 20170413
  20. LIPITOR [Concomitant]
     Active Substance: ATORVASTATIN CALCIUM
     Indication: ACUTE MYOCARDIAL INFARCTION
     Dosage: 20 MG (1 TABLET), QD
     Route: 048
  21. VASTINAN [Concomitant]
     Indication: ACUTE MYOCARDIAL INFARCTION
     Dosage: 20 MG (1 TABLET), BID
     Route: 048
  22. DEXAMETHASONE SODIUM PHOSPHATE. [Concomitant]
     Active Substance: DEXAMETHASONE SODIUM PHOSPHATE
     Dosage: 4 MG, QD
     Route: 042
     Dates: start: 20170322, end: 20170323
  23. AZEPTIN [Concomitant]
     Active Substance: AZELASTINE HYDROCHLORIDE
     Indication: PRODUCTIVE COUGH
     Dosage: 1 MG (1 TABLET), BID
     Route: 048
     Dates: start: 20170217, end: 20170401
  24. MANNITOL. [Concomitant]
     Active Substance: MANNITOL
     Dosage: 70 ML, ONCE
     Route: 042
     Dates: start: 20170411, end: 20170411
  25. GALVUS [Concomitant]
     Active Substance: VILDAGLIPTIN
     Indication: DIABETES MELLITUS
     Dosage: 50 MG (1 TABLET), QD
     Route: 048
  26. METHYSOL [Concomitant]
     Dosage: 56.25 MG, ONCE
     Route: 042
     Dates: start: 20170310, end: 20170310
  27. DEXAMETHASONE. [Concomitant]
     Active Substance: DEXAMETHASONE
     Dosage: 8 MG, QD
     Route: 048
     Dates: start: 20170228, end: 20170301
  28. ALOXI [Concomitant]
     Active Substance: PALONOSETRON HYDROCHLORIDE
     Indication: ANTIEMETIC SUPPORTIVE CARE
     Dosage: 0.25 MG, ONCE
     Route: 042
     Dates: start: 20170227, end: 20170227
  29. PRIVITUSS [Concomitant]
     Indication: COUGH
     Dosage: 8 ML, TID
     Route: 048
     Dates: start: 20170222, end: 20170401
  30. MANNITOL. [Concomitant]
     Active Substance: MANNITOL
     Dosage: 70 ML, ONCE
     Route: 042
     Dates: start: 20170321, end: 20170321
  31. DEXAMETHASONE. [Concomitant]
     Active Substance: DEXAMETHASONE
     Dosage: 8 MG, ONCE
     Route: 048
     Dates: start: 20170320, end: 20170320
  32. LYRICA [Concomitant]
     Active Substance: PREGABALIN
     Indication: PROPHYLAXIS
     Dosage: 150 MG (1 CAPSULE), BID
     Route: 048
     Dates: start: 20170217
  33. EMEND (FOSAPREPITANT DIMEGLUMINE) [Suspect]
     Active Substance: FOSAPREPITANT DIMEGLUMINE
     Dosage: 150 MG, ONCE
     Route: 042
     Dates: start: 20170411, end: 20170411
  34. DOCETAXEL. [Concomitant]
     Active Substance: DOCETAXEL
     Indication: CHEMOTHERAPY
     Dosage: 111 MG, ONCE, CYCLE 1
     Route: 042
     Dates: start: 20170227, end: 20170227
  35. DOCETAXEL. [Concomitant]
     Active Substance: DOCETAXEL
     Dosage: 111 MG, ONCE, CYCLE 2
     Route: 042
     Dates: start: 20170321, end: 20170321
  36. DOCETAXEL. [Concomitant]
     Active Substance: DOCETAXEL
     Dosage: 111 MG, ONCE, CYCLE 3
     Route: 042
     Dates: start: 20170411, end: 20170411
  37. DEXAMETHASONE. [Concomitant]
     Active Substance: DEXAMETHASONE
     Indication: ANTIEMETIC SUPPORTIVE CARE
     Dosage: 8 MG, ONCE
     Route: 048
     Dates: start: 20170226, end: 20170226
  38. MANNITOL. [Concomitant]
     Active Substance: MANNITOL
     Indication: PROPHYLAXIS
     Dosage: 70 ML, ONCE (STRENGTH: 20% 100 ML, BTL)
     Route: 042
     Dates: start: 20170227, end: 20170227

REACTIONS (1)
  - Haemoptysis [Recovered/Resolved]

NARRATIVE: CASE EVENT DATE: 20170308
